FAERS Safety Report 10055906 (Version 1)
Quarter: 2014Q2

REPORT INFORMATION
  Report Type: Spontaneous
  Country: US (occurrence: None)
  Receive Date: 20140402
  Receipt Date: 20140402
  Transmission Date: 20141212
  Serious: Yes (Other)
  Sender: FDA-Public Use
  Company Number: None

PATIENT
  Age: 70 Year
  Sex: Female

DRUGS (1)
  1. PROCRIT [Suspect]
     Indication: LABORATORY TEST ABNORMAL
     Dosage: 10.000 UNITS/ML, WEEKLY, SUBCUTANEOUSLY
     Dates: start: 201202, end: 201403

REACTIONS (7)
  - Pain in extremity [None]
  - Peripheral swelling [None]
  - Erythema [None]
  - Dyspnoea [None]
  - Pain in extremity [None]
  - Local swelling [None]
  - Therapy change [None]
